FAERS Safety Report 13054426 (Version 3)
Quarter: 2017Q1

REPORT INFORMATION
  Report Type: Spontaneous
  Country: FR (occurrence: FR)
  Receive Date: 20161222
  Receipt Date: 20170123
  Transmission Date: 20170428
  Serious: Yes (Death)
  Sender: FDA-Public Use
  Company Number: FR-TEVA-721610ROM

PATIENT
  Age: 16 Year
  Sex: Male

DRUGS (3)
  1. CYTARABINE KABI [Suspect]
     Active Substance: CYTARABINE
     Indication: ACUTE MYELOID LEUKAEMIA
     Dosage: ON 13-JUN2016, CYTARABINE WAS ADMINISTERED 3 HOURS FROM 08:40
     Route: 042
     Dates: start: 20160613, end: 20160614
  2. FLUDARABINE TEVA [Suspect]
     Active Substance: FLUDARABINE PHOSPHATE
     Indication: ACUTE MYELOID LEUKAEMIA
     Dosage: ADMINISTERED 30 MINUTES FROM 07:20 PM
     Route: 042
     Dates: start: 20160613, end: 20160613
  3. ZOPHREN [Concomitant]
     Active Substance: ONDANSETRON
     Dates: start: 20160613

REACTIONS (1)
  - Tumour lysis syndrome [Fatal]

NARRATIVE: CASE EVENT DATE: 20160614
